FAERS Safety Report 5581895-5 (Version None)
Quarter: 2008Q1

REPORT INFORMATION
  Report Type: 
  Country: None (occurrence: None)
  Receive Date: 20080104
  Receipt Date: 20071230
  Transmission Date: 20080703
  Serious: Yes (Other)
  Sender: FDA-Public Use
  Company Number: PHNU2007DE03965

PATIENT
  Sex: Male

DRUGS (5)
  1. RASILEZ [Suspect]
     Dosage: 150 MG, UNK
     Dates: start: 20071127
  2. ANTIHYPERTENSIVE DRUGS [Concomitant]
  3. FUROSEMIDE [Concomitant]
     Dates: start: 20071127
  4. INSULIN RAPID [Concomitant]
     Indication: DIABETES MELLITUS
  5. INSULIN BASAL [Concomitant]
     Indication: DIABETES MELLITUS

REACTIONS (1)
  - BLOOD GLUCOSE INCREASED [None]
